FAERS Safety Report 25742021 (Version 1)
Quarter: 2025Q3

REPORT INFORMATION
  Report Type: Spontaneous
  Country: US (occurrence: US)
  Receive Date: 20250829
  Receipt Date: 20250829
  Transmission Date: 20251020
  Serious: No
  Sender: SANOFI AVENTIS
  Company Number: US-SA-2025SA258721

PATIENT
  Age: 15 Year
  Sex: Female

DRUGS (1)
  1. DUPIXENT [Suspect]
     Active Substance: DUPILUMAB
     Indication: Idiopathic urticaria
     Dosage: 300.000MG QOW
     Route: 058

REACTIONS (4)
  - Urticaria [Unknown]
  - Drug ineffective for unapproved indication [Unknown]
  - Injection site erythema [Unknown]
  - Product use in unapproved indication [Unknown]
